FAERS Safety Report 5511878-2 (Version None)
Quarter: 2007Q4

REPORT INFORMATION
  Report Type: 
  Country: None (occurrence: None)
  Receive Date: 20071109
  Receipt Date: 20071029
  Transmission Date: 20080405
  Serious: Yes (Other)
  Sender: FDA-Public Use
  Company Number: US-PFIZER INC-2007091033

PATIENT
  Sex: Female
  Weight: 57.6 kg

DRUGS (4)
  1. LYRICA [Suspect]
     Indication: BIPOLAR DISORDER
     Dates: start: 20071028, end: 20071029
  2. LAMICTAL [Concomitant]
  3. VALIUM [Concomitant]
  4. SEROQUEL [Concomitant]

REACTIONS (3)
  - DISTURBANCE IN ATTENTION [None]
  - IMPAIRED WORK ABILITY [None]
  - VISION BLURRED [None]
